FAERS Safety Report 8484254-0 (Version None)
Quarter: 2012Q3

REPORT INFORMATION
  Report Type: 
  Country: None (occurrence: None)
  Receive Date: 20120703
  Receipt Date: 20120607
  Transmission Date: 20120928
  Serious: No
  Sender: FDA-Public Use
  Company Number: US-JNJFOC-20120605044

PATIENT
  Age: 3 Decade
  Sex: Female

DRUGS (2)
  1. BENADRYL [Concomitant]
     Route: 065
  2. INVEGA SUSTENNA [Suspect]
     Indication: PRODUCT USED FOR UNKNOWN INDICATION
     Dosage: 234 MG FOR ABOUT 2 MONTHS
     Route: 030

REACTIONS (1)
  - BREAST DISCHARGE [None]
